FAERS Safety Report 8316258-2 (Version None)
Quarter: 2012Q2

REPORT INFORMATION
  Report Type: 
  Country: None (occurrence: None)
  Receive Date: 20120427
  Receipt Date: 20120420
  Transmission Date: 20120825
  Serious: No
  Sender: FDA-Public Use
  Company Number: US-PFIZER INC-2012100017

PATIENT
  Sex: Male

DRUGS (4)
  1. VIAGRA [Suspect]
     Dosage: UNK
  2. LIPITOR [Suspect]
     Dosage: UNK
  3. EFFEXOR XR [Suspect]
     Dosage: UNK
  4. CARDURA [Suspect]
     Dosage: UNK

REACTIONS (1)
  - WITHDRAWAL SYNDROME [None]
